FAERS Safety Report 4437208-5 (Version None)
Quarter: 2004Q3

REPORT INFORMATION
  Report Type: 
  Country: None (occurrence: None)
  Receive Date: 20040726
  Receipt Date: 20040304
  Transmission Date: 20050211
  Serious: No
  Sender: FDA-Public Use
  Company Number: USA040360958

PATIENT
  Age: 49 Year
  Sex: Female
  Weight: 56 kg

DRUGS (3)
  1. FORTEO [Suspect]
     Indication: OSTEOPOROSIS
     Dosage: 20 UG/L DAY
     Dates: start: 20040301
  2. CALCIUM WITH VITAMIN D [Concomitant]
  3. ACTONEL [Concomitant]

REACTIONS (3)
  - INJECTION SITE RASH [None]
  - MUSCLE CRAMP [None]
  - PAIN IN EXTREMITY [None]
